FAERS Safety Report 4596876-8 (Version None)
Quarter: 2005Q1

REPORT INFORMATION
  Report Type: 
  Country: None (occurrence: None)
  Receive Date: 20050228
  Receipt Date: 20040709
  Transmission Date: 20050727
  Serious: Yes (Death)
  Sender: FDA-Public Use
  Company Number: 8414

PATIENT
  Age: 51 Year
  Sex: Female

DRUGS (1)
  1. METHOTREXATE [Suspect]
     Indication: CHORIOCARCINOMA

REACTIONS (2)
  - DISEASE PROGRESSION [None]
  - GENERAL PHYSICAL HEALTH DETERIORATION [None]
